FAERS Safety Report 23658029 (Version 1)
Quarter: 2024Q1

REPORT INFORMATION
  Report Type: Spontaneous
  Country: US (occurrence: US)
  Receive Date: 20240321
  Receipt Date: 20240321
  Transmission Date: 20240410
  Serious: No
  Sender: FDA-Public Use
  Company Number: US-GILEAD-2024-0666483

PATIENT
  Age: 69 Year
  Sex: Male

DRUGS (2)
  1. LENACAPAVIR [Suspect]
     Active Substance: LENACAPAVIR
     Indication: Product used for unknown indication
     Dosage: UNK
     Route: 065
     Dates: end: 202309
  2. LENACAPAVIR [Suspect]
     Active Substance: LENACAPAVIR
     Dosage: THIRD DOSE
     Route: 065
     Dates: start: 20240318

REACTIONS (11)
  - Blood pressure decreased [Recovered/Resolved]
  - Injection site pain [Recovered/Resolved]
  - Head discomfort [Unknown]
  - Chills [Unknown]
  - Vitreous floaters [Unknown]
  - Eye haemorrhage [Unknown]
  - Fatigue [Unknown]
  - Apathy [Unknown]
  - Depression [Unknown]
  - Injection site nodule [Not Recovered/Not Resolved]
  - Retinal disorder [Unknown]
